FAERS Safety Report 18729485 (Version 1)
Quarter: 2021Q1

REPORT INFORMATION
  Report Type: Spontaneous
  Country: CH (occurrence: CH)
  Receive Date: 20210112
  Receipt Date: 20210112
  Transmission Date: 20210419
  Serious: Yes (Hospitalization, Other)
  Sender: FDA-Public Use
  Company Number: CH-TEVA-2021-CH-1867812

PATIENT
  Age: 57 Year
  Sex: Female
  Weight: 66.7 kg

DRUGS (5)
  1. MYDOCALM [Concomitant]
  2. CITALOPRAM [Concomitant]
     Active Substance: CITALOPRAM HYDROBROMIDE
  3. OLFEN DUO RELEASE 75 MG [Suspect]
     Active Substance: DICLOFENAC SODIUM
     Indication: BACK PAIN
     Dosage: 150 MILLIGRAM DAILY;
     Route: 048
     Dates: start: 20201010
  4. CO?DAFALGAN 30/500 MG [Suspect]
     Active Substance: ACETAMINOPHEN\CODEINE PHOSPHATE
     Indication: BACK PAIN
     Dosage: 30/500 MG (CODEINE PHOSPHATE + PARACETAMOL)
     Route: 048
     Dates: start: 20201010
  5. PANTOZOL [Concomitant]
     Active Substance: PANTOPRAZOLE SODIUM
     Dates: start: 20201014

REACTIONS (1)
  - Pancreatitis acute [Recovered/Resolved]

NARRATIVE: CASE EVENT DATE: 20201016
